FAERS Safety Report 10980038 (Version 1)
Quarter: 2015Q2

REPORT INFORMATION
  Report Type: Spontaneous
  Country: CA (occurrence: CA)
  Receive Date: 20150402
  Receipt Date: 20150402
  Transmission Date: 20150821
  Serious: Yes (Hospitalization)
  Sender: FDA-Public Use
  Company Number: CA-BRISTOL-MYERS SQUIBB COMPANY-BMS-2015-019084

PATIENT
  Sex: Male

DRUGS (1)
  1. ABILIFY [Suspect]
     Active Substance: ARIPIPRAZOLE
     Indication: CATATONIA
     Dosage: 2 MG, UNK
     Route: 048

REACTIONS (3)
  - Psychotic disorder [Unknown]
  - Dystonia [Unknown]
  - Off label use [Unknown]
